FAERS Safety Report 21561824 (Version 1)
Quarter: 2022Q4

REPORT INFORMATION
  Report Type: Spontaneous
  Country: US (occurrence: None)
  Receive Date: 20221104
  Receipt Date: 20221104
  Transmission Date: 20230112
  Serious: Yes (Other)
  Sender: FDA-Public Use
  Company Number: None

PATIENT
  Age: 10 Year
  Sex: Male
  Weight: 29.7 kg

DRUGS (1)
  1. OSELTAMIVIR [Suspect]
     Active Substance: OSELTAMIVIR
     Indication: Influenza
     Dosage: OTHER QUANTITY : 6 MG/ML;?FREQUENCY : TWICE A DAY;?
     Route: 048
     Dates: start: 20221102, end: 20221102

REACTIONS (8)
  - Middle insomnia [None]
  - Hallucination, auditory [None]
  - Delusion [None]
  - Fear [None]
  - Musculoskeletal stiffness [None]
  - Crying [None]
  - Tremor [None]
  - Hallucination, visual [None]

NARRATIVE: CASE EVENT DATE: 20221102
